FAERS Safety Report 4314254-3 (Version None)
Quarter: 2004Q1

REPORT INFORMATION
  Report Type: 
  Country: None (occurrence: None)
  Receive Date: 20040309
  Receipt Date: 20040309
  Transmission Date: 20041129
  Serious: No
  Sender: FDA-Public Use
  Company Number: None

PATIENT
  Age: 47 Year
  Sex: Male
  Weight: 54 kg

DRUGS (1)
  1. CYTOGAM 2.5 GM [Suspect]
     Indication: CYTOMEGALOVIRUS INFECTION
     Dosage: 27 GM INTRAVENOUS
     Route: 042
     Dates: start: 20040212, end: 20040213

REACTIONS (2)
  - CHILLS [None]
  - PERIORBITAL OEDEMA [None]
